FAERS Safety Report 5959756-9 (Version None)
Quarter: 2008Q4

REPORT INFORMATION
  Report Type: 
  Country: None (occurrence: None)
  Receive Date: 20081119
  Receipt Date: 20081119
  Transmission Date: 20090506
  Serious: Yes (Hospitalization)
  Sender: FDA-Public Use
  Company Number: None

PATIENT
  Age: 59 Year
  Sex: Female
  Weight: 107.5 kg

DRUGS (14)
  1. WARFARIN SODIUM [Suspect]
     Indication: ATRIAL FIBRILLATION
     Dosage: 7.5MG/5 MG ALTERNATE PO
     Route: 048
     Dates: start: 20080611
  2. AMIODARONE HCL [Suspect]
     Indication: ATRIAL FIBRILLATION
     Dosage: 200 MG PO DAILY
     Route: 048
     Dates: start: 20080611
  3. TRICOR [Concomitant]
  4. LIPITOR [Concomitant]
  5. HYDROMORPHONE HCL [Concomitant]
  6. METFORMIN HCL [Concomitant]
  7. AMBIEN [Concomitant]
  8. XANAX [Concomitant]
  9. AMLODIPINE [Concomitant]
  10. HYZAAR [Concomitant]
  11. LORATADINE [Concomitant]
  12. PRILOSEC [Concomitant]
  13. ADVAIR HFA [Concomitant]
  14. TOPROL-XL [Concomitant]

REACTIONS (2)
  - INTERNATIONAL NORMALISED RATIO INCREASED [None]
  - PERICARDIAL HAEMORRHAGE [None]
